FAERS Safety Report 20809627 (Version 7)
Quarter: 2023Q2

REPORT INFORMATION
  Report Type: Spontaneous
  Country: US (occurrence: US)
  Receive Date: 20220510
  Receipt Date: 20230615
  Transmission Date: 20230722
  Serious: Yes (Other)
  Sender: FDA-Public Use
  Company Number: US-PFIZER INC-202200383612

PATIENT
  Age: 47 Year
  Sex: Male

DRUGS (3)
  1. INLYTA [Suspect]
     Active Substance: AXITINIB
     Dosage: 7 MG, TWICE DAILY
     Dates: start: 202111
  2. INLYTA [Suspect]
     Active Substance: AXITINIB
     Dosage: UNK
     Dates: start: 20220228
  3. INLYTA [Suspect]
     Active Substance: AXITINIB
     Dosage: 2 TABLETS BY MOUTH IN THE MORNING AND 2 TABLETS BY MOUTH IN THE EVENING
     Route: 048
     Dates: start: 20220302

REACTIONS (7)
  - Palmar-plantar erythrodysaesthesia syndrome [Unknown]
  - Hunger [Unknown]
  - Dysphonia [Unknown]
  - Oropharyngeal pain [Unknown]
  - Memory impairment [Unknown]
  - Product dose omission issue [Unknown]
  - Product prescribing error [Unknown]

NARRATIVE: CASE EVENT DATE: 20220301
